FAERS Safety Report 8890235 (Version 2)
Quarter: 2017Q3

REPORT INFORMATION
  Report Type: Spontaneous
  Country: BR (occurrence: BR)
  Receive Date: 20121107
  Receipt Date: 20170811
  Transmission Date: 20171128
  Serious: Yes (Other)
  Sender: FDA-Public Use
  Company Number: BR-PFIZER INC-2012274275

PATIENT
  Age: 42 Year
  Sex: Male
  Weight: 98 kg

DRUGS (7)
  1. FRONTAL [Suspect]
     Active Substance: ALPRAZOLAM
     Dosage: 8 DF, DAILY (8 TABLETS OF THE MEDICINE FRONTAL 2MG PER DAY)
  2. FRONTAL [Suspect]
     Active Substance: ALPRAZOLAM
     Indication: PANIC DISORDER
     Dosage: UNK
     Dates: start: 2007
  3. CAPTOPRIL. [Concomitant]
     Active Substance: CAPTOPRIL
     Dosage: UNK
  4. APRAZ [Concomitant]
     Active Substance: ALPRAZOLAM
     Dosage: UNK
  5. OMEPRAZOLE. [Concomitant]
     Active Substance: OMEPRAZOLE
     Dosage: UNK
  6. FRONTAL [Suspect]
     Active Substance: ALPRAZOLAM
     Dosage: 6 DF, DAILY (6 TABLETS OF THE MEDICINE FRONTAL 2MG PER DAY)
  7. CYMBALTA [Concomitant]
     Active Substance: DULOXETINE HYDROCHLORIDE
     Dosage: UNK

REACTIONS (8)
  - Blood pressure abnormal [Unknown]
  - Nervousness [Unknown]
  - Eating disorder [Unknown]
  - Prescribed overdose [Unknown]
  - Drug ineffective [Unknown]
  - Hypersomnia [Unknown]
  - Blood pressure increased [Unknown]
  - Stress [Unknown]

NARRATIVE: CASE EVENT DATE: 2012
